FAERS Safety Report 10687101 (Version 1)
Quarter: 2015Q1

REPORT INFORMATION
  Report Type: Spontaneous
  Country: US (occurrence: US)
  Receive Date: 20150102
  Receipt Date: 20150102
  Transmission Date: 20150720
  Serious: No
  Sender: FDA-Public Use
  Company Number: US-BIOGENIDEC-2014BI138897

PATIENT
  Age: 43 Year
  Sex: Male

DRUGS (1)
  1. TECFIDERA [Suspect]
     Active Substance: DIMETHYL FUMARATE
     Indication: MULTIPLE SCLEROSIS

REACTIONS (6)
  - Respiratory tract congestion [Not Recovered/Not Resolved]
  - Multiple sclerosis relapse [Unknown]
  - Hypoacusis [Not Recovered/Not Resolved]
  - Nausea [Not Recovered/Not Resolved]
  - Contusion [Not Recovered/Not Resolved]
  - Migraine [Not Recovered/Not Resolved]

NARRATIVE: CASE EVENT DATE: 20141221
